FAERS Safety Report 4555890-9 (Version None)
Quarter: 2005Q1

REPORT INFORMATION
  Report Type: 
  Country: None (occurrence: None)
  Receive Date: 20050119
  Receipt Date: 20050110
  Transmission Date: 20050727
  Serious: Yes (Death)
  Sender: FDA-Public Use
  Company Number: GB-ROCHE-391987

PATIENT
  Age: 22 Year
  Sex: Male

DRUGS (2)
  1. ROACCUTANE [Suspect]
     Route: 065
     Dates: start: 19970215, end: 20000915
  2. PREDNISONE [Concomitant]

REACTIONS (1)
  - COMPLETED SUICIDE [None]
